FAERS Safety Report 7642234-9 (Version None)
Quarter: 2011Q3

REPORT INFORMATION
  Report Type: 
  Country: None (occurrence: None)
  Receive Date: 20110728
  Receipt Date: 20110718
  Transmission Date: 20111222
  Serious: Yes (Hospitalization, Other)
  Sender: FDA-Public Use
  Company Number: PHHY2011BR64914

PATIENT
  Age: 54 Year
  Sex: Female

DRUGS (1)
  1. FORMOTEROL FUMARATE [Suspect]
     Indication: ASTHMA

REACTIONS (4)
  - CYST [None]
  - SECRETION DISCHARGE [None]
  - BONE EROSION [None]
  - RHEUMATOID ARTHRITIS [None]
